FAERS Safety Report 9664174 (Version 1)
Quarter: 2013Q4

REPORT INFORMATION
  Report Type: Spontaneous
  Country: US (occurrence: US)
  Receive Date: 20131101
  Receipt Date: 20131101
  Transmission Date: 20140711
  Serious: Yes (Death)
  Sender: FDA-Public Use
  Company Number: US-SHIRE-ALL1-2013-07561

PATIENT
  Sex: Female
  Weight: 63.49 kg

DRUGS (1)
  1. LIALDA [Suspect]
     Indication: DIARRHOEA
     Dosage: 4.8 G, 1X/DAY:QD (FOUR 1.2 G TABLETS DAILY)
     Route: 048

REACTIONS (2)
  - Hepatic cancer [Fatal]
  - Off label use [Unknown]
